FAERS Safety Report 9443006 (Version 2)
Quarter: 2013Q3

REPORT INFORMATION
  Report Type: Report from Study
  Country: US (occurrence: US)
  Receive Date: 20130806
  Receipt Date: 20130910
  Transmission Date: 20140515
  Serious: Yes (Hospitalization)
  Sender: FDA-Public Use
  Company Number: US-ACTELION-A-NJ2011-49421

PATIENT
  Age: 77 Year
  Sex: Female

DRUGS (2)
  1. VELETRI [Suspect]
     Indication: PULMONARY ARTERIAL HYPERTENSION
     Dosage: 22 NG/KG, PER MIN
     Route: 042
     Dates: start: 20100831
  2. SILDENAFIL [Concomitant]

REACTIONS (7)
  - Fall [Unknown]
  - Head injury [Unknown]
  - Cardiac pacemaker insertion [Unknown]
  - Abscess [Unknown]
  - Injury [Unknown]
  - Arterial rupture [Unknown]
  - Loss of consciousness [Unknown]
